FAERS Safety Report 4783079-7 (Version None)
Quarter: 2005Q3

REPORT INFORMATION
  Report Type: 
  Country: None (occurrence: None)
  Receive Date: 20050914
  Receipt Date: 20050519
  Transmission Date: 20060218
  Serious: Yes (Death, Other)
  Sender: FDA-Public Use
  Company Number: 260-20785-05050303

PATIENT
  Age: 76 Year
  Sex: Male
  Weight: 90 kg

DRUGS (3)
  1. THALIDOMIDE (THALIDOMIDE) (CAPSULES) [Suspect]
     Indication: MULTIPLE MYELOMA
     Dosage: 200 MG, DAILY, ORAL
     Route: 048
     Dates: start: 20040720, end: 20050329
  2. INTRON A [Suspect]
     Indication: MULTIPLE MYELOMA
  3. FORTECORTIN (DEXAMETHASONE) (TABLETS) [Suspect]
     Indication: MULTIPLE MYELOMA
     Dosage: UNKNOWN, DAILY, ORAL
     Route: 048
     Dates: start: 20040707, end: 20050329

REACTIONS (3)
  - ANAEMIA [None]
  - DEATH [None]
  - PYREXIA [None]
